FAERS Safety Report 13544164 (Version 1)
Quarter: 2017Q2

REPORT INFORMATION
  Report Type: Spontaneous
  Country: US (occurrence: US)
  Receive Date: 20170512
  Receipt Date: 20170512
  Transmission Date: 20170830
  Serious: No
  Sender: FDA-Public Use
  Company Number: None

PATIENT
  Age: 65 Year
  Sex: Male
  Weight: 76.5 kg

DRUGS (2)
  1. JUBLIA [Suspect]
     Active Substance: EFINACONAZOLE
     Indication: ONYCHOMYCOSIS
     Dosage: OTHER ROUTE:APPLIED TO NAIL?
     Dates: start: 20170103, end: 20170410
  2. NATURAL SUPPLEMENTS [Concomitant]

REACTIONS (4)
  - Application site pain [None]
  - Blood blister [None]
  - Application site reaction [None]
  - Application site rash [None]

NARRATIVE: CASE EVENT DATE: 20170412
